FAERS Safety Report 5840562-0 (Version None)
Quarter: 2008Q3

REPORT INFORMATION
  Report Type: 
  Country: None (occurrence: None)
  Receive Date: 20080811
  Receipt Date: 20080717
  Transmission Date: 20090109
  Serious: Yes (Other)
  Sender: FDA-Public Use
  Company Number: JP-ASTRAZENECA-2008AP05240

PATIENT
  Age: 68 Year
  Sex: Female

DRUGS (6)
  1. XYLOCAINE [Suspect]
     Indication: LOCAL ANAESTHESIA
     Route: 014
     Dates: start: 20080624, end: 20080701
  2. HYPEN [Suspect]
     Indication: OSTEOARTHRITIS
     Route: 048
     Dates: start: 20080624, end: 20080701
  3. MOHRUS TAPE [Suspect]
     Indication: OSTEOARTHRITIS
     Dosage: DOSE UNKNOWN
     Route: 062
     Dates: start: 20080624, end: 20080701
  4. SUVENYL [Suspect]
     Indication: OSTEOARTHRITIS
     Route: 014
     Dates: start: 20080624, end: 20080701
  5. BOIOGITO [Suspect]
     Indication: OSTEOARTHRITIS
     Route: 048
     Dates: start: 20080624, end: 20080701
  6. MUCOSTA [Suspect]
     Indication: OSTEOARTHRITIS
     Route: 048
     Dates: start: 20080624, end: 20080701

REACTIONS (1)
  - STEVENS-JOHNSON SYNDROME [None]
